FAERS Safety Report 4826812-8 (Version None)
Quarter: 2005Q4

REPORT INFORMATION
  Report Type: 
  Country: None (occurrence: None)
  Receive Date: 20051014
  Receipt Date: 20050622
  Transmission Date: 20060501
  Serious: No
  Sender: FDA-Public Use
  Company Number: 2005SP001554

PATIENT
  Age: 82 Year
  Sex: Female
  Weight: 50.3493 kg

DRUGS (10)
  1. LUNESTA [Suspect]
     Indication: INSOMNIA
     Dosage: 1 MG;1X;ORAL
     Route: 048
     Dates: start: 20050620, end: 20050620
  2. AMLODIPINE [Concomitant]
  3. LEVOXYL [Concomitant]
  4. METHOTREXATE [Concomitant]
  5. FOLIC ACID [Concomitant]
  6. PREDNISONE [Concomitant]
  7. VITAMINS [Concomitant]
  8. ATORVASTATIN CALCIUM [Concomitant]
  9. PROPOXYPHENE NAPSYLATE W/ ACETAMINOPHEN [Concomitant]
  10. FORTEO [Concomitant]

REACTIONS (6)
  - ABDOMINAL PAIN UPPER [None]
  - DIZZINESS [None]
  - DRUG INEFFECTIVE [None]
  - INSOMNIA [None]
  - NAUSEA [None]
  - VOMITING [None]
